FAERS Safety Report 10185157 (Version 2)
Quarter: 2014Q2

REPORT INFORMATION
  Report Type: Spontaneous
  Country: US (occurrence: US)
  Receive Date: 20140521
  Receipt Date: 20140528
  Transmission Date: 20141212
  Serious: Yes (Other)
  Sender: FDA-Public Use
  Company Number: US-RB-065888-14

PATIENT
  Age: 65 Year
  Sex: Female

DRUGS (3)
  1. MUCINEX MAXIMUM STRENGTH [Suspect]
     Indication: PRODUCT USED FOR UNKNOWN INDICATION
     Dosage: CONSUMER STARTED TAKING THE PRODUCT ON ??/MAY/2014.
     Route: 048
     Dates: start: 201405
  2. AZITHROMYCIN [Suspect]
     Indication: LUNG INFECTION
  3. PROBIOTIC [Concomitant]
     Indication: PRODUCT USED FOR UNKNOWN INDICATION

REACTIONS (2)
  - Hallucination [Recovered/Resolved]
  - Autoscopy [Recovered/Resolved]
